FAERS Safety Report 6600964-1 (Version None)
Quarter: 2010Q1

REPORT INFORMATION
  Report Type: 
  Country: None (occurrence: None)
  Receive Date: 20100225
  Receipt Date: 20100215
  Transmission Date: 20100710
  Serious: Yes (Death)
  Sender: FDA-Public Use
  Company Number: US-JNJFOC-20100207829

PATIENT
  Age: 22 Year
  Sex: Male
  Weight: 83.01 kg

DRUGS (4)
  1. FENTANYL [Suspect]
     Indication: DRUG ABUSE
  2. AMITRIPTYLINE HCL [Concomitant]
  3. NORTRIPTYLINE HCL [Concomitant]
  4. PROPOXYPHENE HCL [Concomitant]

REACTIONS (2)
  - ACCIDENTAL OVERDOSE [None]
  - DRUG ABUSE [None]
